FAERS Safety Report 15067106 (Version 1)
Quarter: 2018Q2

REPORT INFORMATION
  Report Type: Spontaneous
  Country: US (occurrence: US)
  Receive Date: 20180606
  Receipt Date: 20180606
  Transmission Date: 20180711
  Serious: No
  Sender: FDA-Public Use
  Company Number: None

PATIENT
  Age: 68 Year
  Sex: Female

DRUGS (15)
  1. VERZENIO [Suspect]
     Active Substance: ABEMACICLIB
     Indication: BREAST CANCER METASTATIC
     Route: 048
     Dates: start: 20180414, end: 20180524
  2. ASPIRIN 81MG [Concomitant]
     Active Substance: ASPIRIN
  3. OXYCODONE 5MG [Concomitant]
     Active Substance: OXYCODONE
  4. CALICIUM 500MG +D [Concomitant]
  5. PANTOPRAZOLE 40MG [Concomitant]
     Active Substance: PANTOPRAZOLE SODIUM
  6. VOLTAREN [Concomitant]
     Active Substance: DICLOFENAC SODIUM
  7. IMITREX 100MG [Concomitant]
  8. ONDANSETRON 8MG [Concomitant]
     Active Substance: ONDANSETRON
  9. KCL 10MEQ [Concomitant]
  10. TRAMADOL 50MG [Concomitant]
     Active Substance: TRAMADOL
  11. LETROZOL 2.5MG [Concomitant]
  12. PAROXETINE 20MG [Concomitant]
     Active Substance: PAROXETINE
  13. XGEVA [Concomitant]
     Active Substance: DENOSUMAB
  14. LITHIUM. [Concomitant]
     Active Substance: LITHIUM
  15. RANITIDINE. [Concomitant]
     Active Substance: RANITIDINE

REACTIONS (9)
  - Weight decreased [None]
  - Dyspnoea [None]
  - Aphasia [None]
  - Diarrhoea [None]
  - Nausea [None]
  - Fatigue [None]
  - Pain in extremity [None]
  - Gait inability [None]
  - Blood creatinine increased [None]

NARRATIVE: CASE EVENT DATE: 20180524
